FAERS Safety Report 16319020 (Version 1)
Quarter: 2019Q2

REPORT INFORMATION
  Report Type: Spontaneous
  Country: US (occurrence: US)
  Receive Date: 20190410
  Receipt Date: 20190410
  Transmission Date: 20190711
  Serious: Yes (Hospitalization)
  Sender: FDA-Public Use
  Company Number: None

PATIENT
  Age: 33 Year
  Sex: Male

DRUGS (14)
  1. CAYSTON [Concomitant]
     Active Substance: AZTREONAM
  2. CREON [Concomitant]
     Active Substance: PANCRELIPASE AMYLASE\PANCRELIPASE LIPASE\PANCRELIPASE PROTEASE
  3. VITAMIN D [Concomitant]
     Active Substance: VITAMIN D NOS
  4. CALCIUM CARBINATE [Concomitant]
  5. SODIUM CHLORIDE. [Concomitant]
     Active Substance: SODIUM CHLORIDE
  6. LIDOCAINE PATCH [Concomitant]
     Active Substance: LIDOCAINE
  7. PHYTONADIONE. [Concomitant]
     Active Substance: PHYTONADIONE
  8. SENNA PLUS [Concomitant]
     Active Substance: DOCUSATE SODIUM\SENNOSIDES\SENNOSIDES A AND B
  9. COMPLETE FORMULATION [Concomitant]
  10. SYMDEKO [Concomitant]
     Active Substance: IVACAFTOR\TEZACAFTOR
  11. IPRATROPIUM [Concomitant]
     Active Substance: IPRATROPIUM
  12. FERROUS SULFATE. [Concomitant]
     Active Substance: FERROUS SULFATE
  13. TENOFOVIR 300MG TABLET [Suspect]
     Active Substance: TENOFOVIR
     Indication: CYSTIC FIBROSIS
     Route: 048
     Dates: start: 20180307
  14. ALBUTEROL. [Concomitant]
     Active Substance: ALBUTEROL

REACTIONS (1)
  - Pneumonia [None]

NARRATIVE: CASE EVENT DATE: 20190327
